FAERS Safety Report 16633462 (Version 2)
Quarter: 2019Q4

REPORT INFORMATION
  Report Type: Other
  Country: US (occurrence: US)
  Receive Date: 20190725
  Receipt Date: 20191018
  Transmission Date: 20200122
  Serious: Yes (Hospitalization, Other)
  Sender: FDA-Public Use
  Company Number: US-AMAG PHARMACEUTICALS, INC.-AMAG201903804

PATIENT
  Age: 28 Year
  Sex: Female

DRUGS (3)
  1. HUMALOG [Concomitant]
     Active Substance: INSULIN LISPRO
     Indication: TYPE 1 DIABETES MELLITUS
     Dosage: 1 UNIT/9 CARBS WITH MEALS
  2. LANTUS [Concomitant]
     Active Substance: INSULIN GLARGINE
     Indication: TYPE 1 DIABETES MELLITUS
     Dosage: 33U NIGHTLY
  3. MAKENA [Suspect]
     Active Substance: HYDROXYPROGESTERONE CAPROATE
     Indication: PREMATURE DELIVERY
     Dosage: 275 MG WEEKLY
     Route: 058
     Dates: end: 20190716

REACTIONS (4)
  - Cholestasis of pregnancy [Unknown]
  - Premature delivery [Recovered/Resolved]
  - Gestational hypertension [Unknown]
  - Anaemia [Unknown]

NARRATIVE: CASE EVENT DATE: 201906
